FAERS Safety Report 10890873 (Version 6)
Quarter: 2017Q3

REPORT INFORMATION
  Report Type: Report from Study
  Country: GB (occurrence: GB)
  Receive Date: 20150305
  Receipt Date: 20170711
  Transmission Date: 20171127
  Serious: Yes (Other)
  Sender: FDA-Public Use
  Company Number: PHHY2015GB026122

PATIENT
  Age: 30 Year
  Sex: Female
  Weight: 65 kg

DRUGS (2)
  1. GILENYA [Suspect]
     Active Substance: FINGOLIMOD HYDROCHLORIDE
     Dosage: UNK, QD
     Route: 048
     Dates: start: 20160824
  2. GILENYA [Suspect]
     Active Substance: FINGOLIMOD HYDROCHLORIDE
     Indication: MULTIPLE SCLEROSIS
     Dosage: 0.5 MG, QD
     Route: 048
     Dates: start: 20140305, end: 20160810

REACTIONS (12)
  - Eye pain [Recovered/Resolved]
  - Limb discomfort [Unknown]
  - White blood cell count decreased [Unknown]
  - Burning sensation [Not Recovered/Not Resolved]
  - Sensory disturbance [Not Recovered/Not Resolved]
  - Hypoaesthesia [Not Recovered/Not Resolved]
  - Blindness unilateral [Recovered/Resolved]
  - Alanine aminotransferase increased [Recovered/Resolved]
  - Migraine [Recovered/Resolved]
  - Monocyte count decreased [Recovered/Resolved]
  - Paraesthesia [Not Recovered/Not Resolved]
  - Fatigue [Unknown]

NARRATIVE: CASE EVENT DATE: 20140417
